FAERS Safety Report 5383819-2 (Version None)
Quarter: 2007Q3

REPORT INFORMATION
  Report Type: 
  Country: None (occurrence: None)
  Receive Date: 20070702
  Receipt Date: 20070506
  Transmission Date: 20080115
  Serious: No
  Sender: FDA-Public Use
  Company Number: 2007PV032892

PATIENT
  Age: 60 Year
  Sex: Female

DRUGS (4)
  1. SYMLIN [Suspect]
     Indication: TYPE 1 DIABETES MELLITUS
     Dosage: 60 MCG; TID; SC : 30 MCG; TID; SC : 15 MCG; TID; SC
     Route: 058
     Dates: start: 20060101, end: 20060101
  2. SYMLIN [Suspect]
     Indication: TYPE 1 DIABETES MELLITUS
     Dosage: 60 MCG; TID; SC : 30 MCG; TID; SC : 15 MCG; TID; SC
     Route: 058
     Dates: start: 20060101, end: 20060101
  3. SYMLIN [Suspect]
     Indication: TYPE 1 DIABETES MELLITUS
     Dosage: 60 MCG; TID; SC : 30 MCG; TID; SC : 15 MCG; TID; SC
     Route: 058
     Dates: start: 20060101, end: 20060101
  4. INSULIN [Concomitant]

REACTIONS (4)
  - ABDOMINAL DISTENSION [None]
  - BLOOD GLUCOSE INCREASED [None]
  - EARLY SATIETY [None]
  - WEIGHT DECREASED [None]
